FAERS Safety Report 25179300 (Version 1)
Quarter: 2025Q2

REPORT INFORMATION
  Report Type: Report from Study
  Country: US (occurrence: US)
  Receive Date: 20250409
  Receipt Date: 20250409
  Transmission Date: 20250716
  Serious: Yes (Other)
  Sender: TAKEDA
  Company Number: US-TAKEDA-2021TUS024881

PATIENT
  Age: 36 Year
  Sex: Female
  Weight: 79 kg

DRUGS (1)
  1. VEDOLIZUMAB [Suspect]
     Active Substance: VEDOLIZUMAB
     Indication: Crohn^s disease

REACTIONS (8)
  - Atrial septal defect [Unknown]
  - Illness [Unknown]
  - Feeling drunk [Not Recovered/Not Resolved]
  - Incorrect product administration duration [Unknown]
  - Vascular device occlusion [Unknown]
  - Dizziness [Not Recovered/Not Resolved]
  - Fatigue [Not Recovered/Not Resolved]
  - Headache [Unknown]

NARRATIVE: CASE EVENT DATE: 20210415
